FAERS Safety Report 6687454-5 (Version None)
Quarter: 2010Q2

REPORT INFORMATION
  Report Type: 
  Country: None (occurrence: None)
  Receive Date: 20100419
  Receipt Date: 20100415
  Transmission Date: 20101027
  Serious: Yes (Death, Hospitalization, Other)
  Sender: FDA-Public Use
  Company Number: PHHY2010BR23436

PATIENT
  Age: 67 Year
  Sex: Female

DRUGS (4)
  1. FEMARA [Suspect]
     Indication: BREAST CANCER
     Dosage: 2.5 MG DAILY
     Route: 048
     Dates: start: 20091101
  2. PROPRANOLOL [Concomitant]
     Indication: HYPERTENSION
     Dosage: 80MG (TWO TABLETS) DAILY
     Route: 048
  3. NEXIUM [Concomitant]
     Indication: GASTRIC DISORDER
     Dosage: 20 MG (1 TABLET) DAILY
  4. ALDACTONE [Concomitant]
     Indication: DIURETIC THERAPY
     Dosage: 100 MG (1 TABLET) DAILY
     Route: 048

REACTIONS (4)
  - DYSPNOEA [None]
  - PNEUMONIA [None]
  - RENAL IMPAIRMENT [None]
  - RESPIRATORY ARREST [None]
